FAERS Safety Report 4855163-0 (Version None)
Quarter: 2005Q4

REPORT INFORMATION
  Report Type: 
  Country: None (occurrence: None)
  Receive Date: 20051215
  Receipt Date: 20050107
  Transmission Date: 20060501
  Serious: Yes (Hospitalization, Disabling)
  Sender: FDA-Public Use
  Company Number: US-MERCK-0501USA02353

PATIENT
  Age: 37 Year
  Sex: Male
  Weight: 82 kg

DRUGS (5)
  1. VIOXX [Suspect]
     Indication: ARTHRITIS
     Route: 048
     Dates: start: 20000101, end: 20040901
  2. SEROQUEL [Concomitant]
     Route: 065
  3. AZATIOPRIN [Concomitant]
     Route: 065
  4. ASACOL [Concomitant]
     Route: 065
  5. VICODIN [Concomitant]
     Route: 065

REACTIONS (15)
  - ANOREXIA [None]
  - ASTHENIA [None]
  - BLOOD ALKALINE PHOSPHATASE INCREASED [None]
  - CARDIAC DISORDER [None]
  - CHEST PAIN [None]
  - COLITIS ULCERATIVE [None]
  - CROHN'S DISEASE [None]
  - DIABETES MELLITUS [None]
  - DYSPNOEA [None]
  - ELECTROCARDIOGRAM ST-T CHANGE [None]
  - GASTROOESOPHAGEAL REFLUX DISEASE [None]
  - HYPOKALAEMIA [None]
  - KETOACIDOSIS [None]
  - NEUROPATHY PERIPHERAL [None]
  - WEIGHT DECREASED [None]
